FAERS Safety Report 10904987 (Version 1)
Quarter: 2015Q1

REPORT INFORMATION
  Report Type: Spontaneous
  Country: US (occurrence: US)
  Receive Date: 20150311
  Receipt Date: 20150311
  Transmission Date: 20150721
  Serious: Yes (Hospitalization, Other)
  Sender: FDA-Public Use
  Company Number: US-TEVA-545954USA

PATIENT
  Sex: Female

DRUGS (5)
  1. COPAXONE [Suspect]
     Active Substance: GLATIRAMER ACETATE
     Indication: MULTIPLE SCLEROSIS
     Dosage: 17.1429 MILLIGRAM DAILY;
     Route: 058
     Dates: start: 201407
  2. TYLENOL [Concomitant]
     Active Substance: ACETAMINOPHEN
  3. TRAMADOL [Concomitant]
     Active Substance: TRAMADOL
  4. LYRICA [Concomitant]
     Active Substance: PREGABALIN
  5. VALIUM [Concomitant]
     Active Substance: DIAZEPAM

REACTIONS (5)
  - Multiple sclerosis relapse [Unknown]
  - Headache [Unknown]
  - Migraine [Unknown]
  - Seizure [Unknown]
  - VIIth nerve paralysis [Unknown]
